FAERS Safety Report 5617276-5 (Version None)
Quarter: 2008Q1

REPORT INFORMATION
  Report Type: 
  Country: None (occurrence: None)
  Receive Date: 20080207
  Receipt Date: 20070622
  Transmission Date: 20080703
  Serious: No
  Sender: FDA-Public Use
  Company Number: A0660803A

PATIENT
  Sex: Female

DRUGS (1)
  1. PAXIL [Suspect]
     Indication: DRUG USE FOR UNKNOWN INDICATION
     Route: 048
     Dates: start: 20070616

REACTIONS (4)
  - BALANCE DISORDER [None]
  - DIZZINESS [None]
  - MYDRIASIS [None]
  - PHOTOSENSITIVITY REACTION [None]
